FAERS Safety Report 16373282 (Version 3)
Quarter: 2019Q4

REPORT INFORMATION
  Report Type: Spontaneous
  Country: GB (occurrence: GB)
  Receive Date: 20190530
  Receipt Date: 20191015
  Transmission Date: 20200122
  Serious: Yes (Hospitalization, Other)
  Sender: FDA-Public Use
  Company Number: GB-MYLANLABS-2019M1050795

PATIENT
  Age: 35 Year
  Sex: Female

DRUGS (3)
  1. CLOZARIL [Suspect]
     Active Substance: CLOZAPINE
     Indication: SCHIZOPHRENIA
     Dosage: UNK
     Dates: start: 201905
  2. CLOZARIL [Suspect]
     Active Substance: CLOZAPINE
     Dosage: UNK
     Route: 048
     Dates: start: 20190624
  3. CLOZARIL [Suspect]
     Active Substance: CLOZAPINE
     Indication: SCHIZOAFFECTIVE DISORDER
     Dosage: UNK
     Route: 048
     Dates: start: 20150907

REACTIONS (4)
  - Leukocytosis [Unknown]
  - Schizophrenia [Unknown]
  - Product use in unapproved indication [Unknown]
  - Hospitalisation [Unknown]

NARRATIVE: CASE EVENT DATE: 2019
